FAERS Safety Report 19383979 (Version 1)
Quarter: 2021Q2

REPORT INFORMATION
  Report Type: Spontaneous
  Country: JP (occurrence: JP)
  Receive Date: 20210607
  Receipt Date: 20210607
  Transmission Date: 20210717
  Serious: Yes (Other)
  Sender: FDA-Public Use
  Company Number: JP-PFIZER INC-2021591292

PATIENT
  Age: 91 Year
  Sex: Female

DRUGS (2)
  1. FUROSEMIDE. [Suspect]
     Active Substance: FUROSEMIDE
     Route: 048
  2. ALDACTONE A [Suspect]
     Active Substance: SPIRONOLACTONE
     Indication: OEDEMA
     Route: 048

REACTIONS (2)
  - Erythema [Unknown]
  - Breast cancer recurrent [Unknown]
